FAERS Safety Report 6708356-1 (Version None)
Quarter: 2010Q2

REPORT INFORMATION
  Report Type: 
  Country: None (occurrence: None)
  Receive Date: 20100503
  Receipt Date: 20090625
  Transmission Date: 20101027
  Serious: Yes (Hospitalization)
  Sender: FDA-Public Use
  Company Number: US-ASTRAZENECA-2009UW17433

PATIENT
  Age: 0 Week
  Sex: Female
  Weight: 2.5 kg

DRUGS (5)
  1. NEXIUM [Suspect]
     Indication: GASTROOESOPHAGEAL REFLUX DISEASE
     Route: 064
  2. REBIF [Suspect]
     Indication: MULTIPLE SCLEROSIS
     Route: 064
     Dates: start: 20050523, end: 20080619
  3. NASONEX [Suspect]
     Route: 064
  4. LIDODERM PAIN PATCH [Suspect]
     Route: 064
  5. PRENATAL VITAMINS [Suspect]
     Route: 064

REACTIONS (1)
  - PLATELET COUNT DECREASED [None]
